FAERS Safety Report 14443568 (Version 1)
Quarter: 2018Q1

REPORT INFORMATION
  Report Type: Report from Study
  Country: US (occurrence: US)
  Receive Date: 20180125
  Receipt Date: 20180125
  Transmission Date: 20180509
  Serious: No
  Sender: FDA-Public Use
  Company Number: US-AMGEN-USASL2017159332

PATIENT
  Age: 87 Year
  Sex: Female

DRUGS (1)
  1. KYPROLIS [Suspect]
     Active Substance: CARFILZOMIB
     Indication: PLASMA CELL MYELOMA
     Dosage: UNK, DAYS 1,2,8,9,15,16 Q 28 DAYS
     Route: 065

REACTIONS (11)
  - Electrocardiogram [Unknown]
  - Fatigue [Unknown]
  - Eye pain [Recovering/Resolving]
  - Blood test abnormal [Unknown]
  - Headache [Recovering/Resolving]
  - Immune system disorder [Unknown]
  - Dry mouth [Unknown]
  - Functional gastrointestinal disorder [Unknown]
  - Cognitive disorder [Unknown]
  - Pain [Recovering/Resolving]
  - Asthenia [Unknown]

NARRATIVE: CASE EVENT DATE: 20171017
